FAERS Safety Report 16057810 (Version 1)
Quarter: 2019Q1

REPORT INFORMATION
  Report Type: Spontaneous
  Country: US (occurrence: US)
  Receive Date: 20190311
  Receipt Date: 20190311
  Transmission Date: 20190418
  Serious: No
  Sender: FDA-Public Use
  Company Number: US-TEVA-2019-US-1014103

PATIENT
  Sex: Female

DRUGS (16)
  1. ALLEGRA [Concomitant]
     Active Substance: FEXOFENADINE HYDROCHLORIDE
  2. ISOSORBIDE. [Concomitant]
     Active Substance: ISOSORBIDE
  3. CALCITRIOL. [Concomitant]
     Active Substance: CALCITRIOL
  4. HYDROCODONE [Concomitant]
     Active Substance: HYDROCODONE
  5. SYNTHROID [Concomitant]
     Active Substance: LEVOTHYROXINE SODIUM
  6. M SOMA [Concomitant]
  7. SYNRIBO [Suspect]
     Active Substance: OMACETAXINE MEPESUCCINATE
     Indication: CHRONIC MYELOID LEUKAEMIA
     Dosage: 2.0 MG/0.57ML BID X 7 DAYS
     Dates: start: 20171019
  8. PRAVASTATIN. [Concomitant]
     Active Substance: PRAVASTATIN
  9. LISINOPRIL. [Concomitant]
     Active Substance: LISINOPRIL
  10. PLAVIX [Concomitant]
     Active Substance: CLOPIDOGREL BISULFATE
  11. MULTIVITAMIN [Concomitant]
     Active Substance: VITAMINS
  12. VENLAFAXINE [Concomitant]
     Active Substance: VENLAFAXINE HYDROCHLORIDE
  13. BISOPROLOL FUMARATE. [Concomitant]
     Active Substance: BISOPROLOL FUMARATE
  14. XANAX [Concomitant]
     Active Substance: ALPRAZOLAM
  15. RANITIDINE. [Concomitant]
     Active Substance: RANITIDINE
  16. BENADRYL [Concomitant]
     Active Substance: DIPHENHYDRAMINE HYDROCHLORIDE

REACTIONS (2)
  - Drug ineffective [Unknown]
  - Disease progression [Unknown]
